FAERS Safety Report 4592329-1 (Version None)
Quarter: 2005Q1

REPORT INFORMATION
  Report Type: 
  Country: None (occurrence: None)
  Receive Date: 20050228
  Receipt Date: 20041208
  Transmission Date: 20050727
  Serious: No
  Sender: FDA-Public Use
  Company Number: US-BRISTOL-MYERS SQUIBB COMPANY-12789871

PATIENT
  Age: 22 Year
  Sex: Female
  Weight: 82 kg

DRUGS (3)
  1. ABILIFY [Suspect]
     Indication: AUTISM
     Route: 048
  2. STRATTERA [Concomitant]
  3. NEURONTIN [Concomitant]

REACTIONS (1)
  - SLEEP TERROR [None]
